FAERS Safety Report 14537132 (Version 2)
Quarter: 2018Q4

REPORT INFORMATION
  Report Type: Spontaneous
  Country: US (occurrence: US)
  Receive Date: 20180215
  Receipt Date: 20181008
  Transmission Date: 20190204
  Serious: Yes (Other)
  Sender: FDA-Public Use
  Company Number: US-SA-2018SA025215

PATIENT
  Age: 59 Year
  Sex: Female
  Weight: 66 kg

DRUGS (3)
  1. HUMIRA [Suspect]
     Active Substance: ADALIMUMAB
     Indication: PSORIASIS
     Dosage: 40 MG,QOW
     Route: 058
     Dates: start: 2014
  2. ACETYLSALICYLIC ACID [Concomitant]
     Active Substance: ASPIRIN
  3. PLAVIX [Suspect]
     Active Substance: CLOPIDOGREL BISULFATE
     Indication: ANTICOAGULANT THERAPY
     Dosage: UNK UNK,UNK
     Route: 048

REACTIONS (25)
  - Psoriasis [Recovering/Resolving]
  - Pain in extremity [Recovered/Resolved]
  - Gait disturbance [Unknown]
  - Pain in extremity [Not Recovered/Not Resolved]
  - Pain in extremity [Not Recovered/Not Resolved]
  - Plantar fasciitis [Unknown]
  - Aortic perforation [Not Recovered/Not Resolved]
  - Peripheral circulatory failure [Unknown]
  - Arterial occlusive disease [Unknown]
  - Varicose vein [Not Recovered/Not Resolved]
  - Weight decreased [Recovering/Resolving]
  - Headache [Unknown]
  - Cardiac murmur [Not Recovered/Not Resolved]
  - Iridoschisis [Unknown]
  - Dyspnoea [Recovering/Resolving]
  - Blood cholesterol increased [Unknown]
  - Mitral valve prolapse [Not Recovered/Not Resolved]
  - Tendon disorder [Not Recovered/Not Resolved]
  - Back pain [Recovering/Resolving]
  - Malaise [Recovered/Resolved]
  - Acquired cardiac septal defect [Unknown]
  - Stent placement [Recovered/Resolved]
  - Peripheral circulatory failure [Unknown]
  - Poor peripheral circulation [Unknown]
  - Injection site pain [Recovering/Resolving]

NARRATIVE: CASE EVENT DATE: 2015
